FAERS Safety Report 13725840 (Version 1)
Quarter: 2017Q3

REPORT INFORMATION
  Report Type: Spontaneous
  Country: US (occurrence: US)
  Receive Date: 20170706
  Receipt Date: 20170706
  Transmission Date: 20171127
  Serious: Yes (Disabling)
  Sender: FDA-Public Use
  Company Number: None

PATIENT
  Age: 28 Year
  Sex: Female
  Weight: 85.5 kg

DRUGS (1)
  1. LO LOESTRIN FE [Suspect]
     Active Substance: ETHINYL ESTRADIOL\NORETHINDRONE ACETATE
     Indication: CONTRACEPTION
     Dosage: ?          QUANTITY:1 TABLET(S);?
     Route: 048
     Dates: start: 20170213, end: 20170706

REACTIONS (5)
  - Diarrhoea [None]
  - Haemorrhoids [None]
  - Decreased activity [None]
  - Irritable bowel syndrome [None]
  - Hyperchlorhydria [None]

NARRATIVE: CASE EVENT DATE: 20170612
